FAERS Safety Report 25662964 (Version 5)
Quarter: 2025Q3

REPORT INFORMATION
  Report Type: Spontaneous
  Country: BR (occurrence: BR)
  Receive Date: 20250811
  Receipt Date: 20250929
  Transmission Date: 20251020
  Serious: Yes (Other)
  Sender: SANDOZ
  Company Number: BR-SANDOZ-SDZ2025BR057510

PATIENT
  Sex: Male

DRUGS (6)
  1. ADALIMUMAB [Suspect]
     Active Substance: ADALIMUMAB
     Indication: Product used for unknown indication
     Route: 065
  2. COSENTYX [Suspect]
     Active Substance: SECUKINUMAB
     Indication: Ankylosing spondylitis
     Route: 065
  3. COSENTYX [Suspect]
     Active Substance: SECUKINUMAB
     Route: 065
  4. PREGABALIN [Suspect]
     Active Substance: PREGABALIN
     Indication: Product used for unknown indication
     Route: 065
  5. PAMELOR [Suspect]
     Active Substance: NORTRIPTYLINE HYDROCHLORIDE
     Indication: Pain
     Route: 065
  6. SECUKINUMAB [Suspect]
     Active Substance: SECUKINUMAB
     Indication: Product used for unknown indication
     Route: 065

REACTIONS (26)
  - Uveitis [Recovering/Resolving]
  - Mass [Recovered/Resolved]
  - Memory impairment [Not Recovered/Not Resolved]
  - Intervertebral disc disorder [Recovered/Resolved]
  - Sleep disorder [Recovered/Resolved]
  - Illness [Recovered/Resolved]
  - Dyskinesia [Recovered/Resolved]
  - Blister [Not Recovered/Not Resolved]
  - Stress [Not Recovered/Not Resolved]
  - Irritability [Recovered/Resolved]
  - Crying [Unknown]
  - Feeling abnormal [Unknown]
  - Ligament pain [Not Recovered/Not Resolved]
  - Neck pain [Unknown]
  - Skin exfoliation [Unknown]
  - Dry skin [Unknown]
  - Drooling [Recovering/Resolving]
  - Spondylitis [Unknown]
  - Pain [Recovered/Resolved]
  - Dizziness [Recovering/Resolving]
  - Musculoskeletal stiffness [Recovering/Resolving]
  - Visual impairment [Recovering/Resolving]
  - Back pain [Not Recovered/Not Resolved]
  - Arthralgia [Not Recovered/Not Resolved]
  - Headache [Recovering/Resolving]
  - Pruritus [Not Recovered/Not Resolved]

NARRATIVE: CASE EVENT DATE: 20240101
